FAERS Safety Report 11670422 (Version 1)
Quarter: 2015Q4

REPORT INFORMATION
  Report Type: Spontaneous
  Country: US (occurrence: US)
  Receive Date: 20151027
  Receipt Date: 20151027
  Transmission Date: 20160304
  Serious: No
  Sender: FDA-Public Use
  Company Number: US-ELI_LILLY_AND_COMPANY-US201004007170

PATIENT
  Age: 65 Year
  Sex: Female

DRUGS (2)
  1. FORTEO [Suspect]
     Active Substance: TERIPARATIDE
     Dosage: 20 UG, OTHER
     Dates: start: 20100316
  2. FORTEO [Suspect]
     Active Substance: TERIPARATIDE
     Indication: OSTEOPOROSIS
     Dosage: 20 UG, OTHER
     Dates: start: 2008, end: 2008

REACTIONS (13)
  - Injection site bruising [Unknown]
  - Abdominal pain upper [Unknown]
  - Inappropriate schedule of drug administration [Unknown]
  - Abdominal discomfort [Unknown]
  - Paraesthesia [Unknown]
  - Injection site rash [Recovered/Resolved]
  - Burning sensation [Unknown]
  - Dyspepsia [Unknown]
  - Rash [Recovered/Resolved]
  - Feeling abnormal [Unknown]
  - Injection site pain [Unknown]
  - Poor quality drug administered [Unknown]
  - Tooth disorder [Unknown]

NARRATIVE: CASE EVENT DATE: 2008
